FAERS Safety Report 5371143-3 (Version None)
Quarter: 2007Q2

REPORT INFORMATION
  Report Type: 
  Country: None (occurrence: None)
  Receive Date: 20070626
  Receipt Date: 20070620
  Transmission Date: 20071010
  Serious: Yes (Hospitalization)
  Sender: FDA-Public Use
  Company Number: SG-MERCK-0706SGP00007

PATIENT
  Age: 77 Year
  Sex: Male

DRUGS (1)
  1. FOSAMAX [Suspect]
     Route: 048
     Dates: start: 20040101, end: 20070101

REACTIONS (1)
  - FEMUR FRACTURE [None]
